FAERS Safety Report 4894459-3 (Version None)
Quarter: 2006Q1

REPORT INFORMATION
  Report Type: 
  Country: None (occurrence: None)
  Receive Date: 20060127
  Receipt Date: 20040325
  Transmission Date: 20060701
  Serious: Yes (Hospitalization)
  Sender: FDA-Public Use
  Company Number: US-ROCHE-364094

PATIENT
  Age: 18 Year
  Sex: Male
  Weight: 79.4 kg

DRUGS (7)
  1. ACCUTANE [Suspect]
     Indication: ACNE
     Route: 048
     Dates: start: 19830615, end: 19840915
  2. FLONASE [Concomitant]
     Dates: start: 19940615, end: 20040615
  3. CLARITIN [Concomitant]
     Dates: start: 19940615, end: 20040615
  4. CORTISONE INJECTION [Concomitant]
     Dates: start: 19940615, end: 20040615
  5. AMOXICILLIN [Concomitant]
     Dates: start: 19940615, end: 20040615
  6. ZOMIG [Concomitant]
     Indication: MIGRAINE
     Dates: start: 20000615, end: 20040615
  7. VIAGRA [Concomitant]
     Dates: start: 20000615, end: 20010615

REACTIONS (31)
  - ABDOMINAL PAIN UPPER [None]
  - ARTHRALGIA [None]
  - ATTENTION DEFICIT/HYPERACTIVITY DISORDER [None]
  - COLITIS [None]
  - COLITIS ULCERATIVE [None]
  - CROHN'S DISEASE [None]
  - DEHYDRATION [None]
  - DEPRESSION [None]
  - DRY SKIN [None]
  - EMOTIONAL DISTRESS [None]
  - FUNGAL INFECTION [None]
  - GASTROINTESTINAL DISORDER [None]
  - GASTROINTESTINAL HAEMORRHAGE [None]
  - HEADACHE [None]
  - INFLAMMATORY BOWEL DISEASE [None]
  - INTESTINAL HAEMORRHAGE [None]
  - IRON DEFICIENCY ANAEMIA [None]
  - LYMPHADENOPATHY [None]
  - LYMPHOID TISSUE HYPERPLASIA [None]
  - MALNUTRITION [None]
  - NIGHT BLINDNESS [None]
  - NIGHT SWEATS [None]
  - PROCTITIS [None]
  - SCAR [None]
  - SLEEP DISORDER [None]
  - SOMNOLENCE [None]
  - THERAPY NON-RESPONDER [None]
  - VICTIM OF CRIME [None]
  - VISION BLURRED [None]
  - VISUAL ACUITY REDUCED [None]
  - WEIGHT DECREASED [None]
